FAERS Safety Report 8608861-7 (Version None)
Quarter: 2012Q3

REPORT INFORMATION
  Report Type: 
  Country: None (occurrence: None)
  Receive Date: 20120821
  Receipt Date: 20120816
  Transmission Date: 20120928
  Serious: Yes (Disabling, Other)
  Sender: FDA-Public Use
  Company Number: AU-PFIZER INC-2012170027

PATIENT
  Age: 50 Year
  Sex: Female
  Weight: 104 kg

DRUGS (7)
  1. LIPIDIL [Concomitant]
     Indication: BLOOD CHOLESTEROL INCREASED
     Dosage: 145 MG, 1X/DAY
     Route: 048
     Dates: start: 20080101
  2. LIPITOR [Suspect]
     Indication: HYPERLIPIDAEMIA
  3. METOPROLOL TARTRATE [Concomitant]
     Indication: TACHYCARDIA
     Dosage: 50 MG, 2X/DAY
     Route: 048
     Dates: start: 20120401
  4. LIPITOR [Suspect]
     Indication: CARDIOVASCULAR EVENT PROPHYLAXIS
     Dosage: 40 MG, 1X/DAY AT NIGHT
     Route: 048
     Dates: start: 20120612, end: 20120628
  5. MICARDIS [Concomitant]
     Indication: HYPERTENSION
     Dosage: 80 MG, 1X/DAY
     Route: 048
     Dates: start: 20050101
  6. RABEPRAZOLE SODIUM [Concomitant]
     Indication: GASTROOESOPHAGEAL REFLUX DISEASE
     Dosage: UNK, 1X/DAY
     Route: 048
     Dates: start: 20100101
  7. ST. JOHN'S WORT [Concomitant]
     Dosage: 1 DF, 1X/DAY
     Dates: start: 20070101

REACTIONS (5)
  - LETHARGY [None]
  - NAUSEA [None]
  - MYALGIA [None]
  - VOMITING [None]
  - FATIGUE [None]
